FAERS Safety Report 16815944 (Version 1)
Quarter: 2019Q3

REPORT INFORMATION
  Report Type: Spontaneous
  Country: US (occurrence: US)
  Receive Date: 20190917
  Receipt Date: 20190917
  Transmission Date: 20191005
  Serious: No
  Sender: FDA-Public Use
  Company Number: US-ALLERGAN-1916037US

PATIENT
  Sex: Male

DRUGS (11)
  1. OXCARBAZEPINE. [Concomitant]
     Active Substance: OXCARBAZEPINE
  2. LINZESS [Suspect]
     Active Substance: LINACLOTIDE
     Indication: IRRITABLE BOWEL SYNDROME
     Dosage: 145 ?G, QD
     Route: 048
  3. LINZESS [Suspect]
     Active Substance: LINACLOTIDE
     Dosage: 72 ?G, QD
     Route: 048
  4. LITHIUM. [Concomitant]
     Active Substance: LITHIUM
  5. SUBOXONE [Concomitant]
     Active Substance: BUPRENORPHINE HYDROCHLORIDE\NALOXONE HYDROCHLORIDE
     Indication: PAIN
     Dosage: 1 1/2 PER DAY
     Route: 065
  6. LAMICTAL [Concomitant]
     Active Substance: LAMOTRIGINE
  7. SUBOXONE [Concomitant]
     Active Substance: BUPRENORPHINE HYDROCHLORIDE\NALOXONE HYDROCHLORIDE
     Dosage: 3 PER DAY
     Route: 065
  8. ALPRAZOLAM. [Concomitant]
     Active Substance: ALPRAZOLAM
  9. OMEPRAZOLE. [Concomitant]
     Active Substance: OMEPRAZOLE
  10. DOXEPIN [Concomitant]
     Active Substance: DOXEPIN
  11. LINZESS [Suspect]
     Active Substance: LINACLOTIDE
     Dosage: TWO 145 MCG CAPSULES AT ONE TIME
     Route: 065

REACTIONS (4)
  - Incorrect dose administered [Unknown]
  - Constipation [Unknown]
  - Drug ineffective [Unknown]
  - Frequent bowel movements [Unknown]
